FAERS Safety Report 6186635-7 (Version None)
Quarter: 2009Q2

REPORT INFORMATION
  Report Type: 
  Country: None (occurrence: None)
  Receive Date: 20090512
  Receipt Date: 20090430
  Transmission Date: 20091009
  Serious: Yes (Other)
  Sender: FDA-Public Use
  Company Number: FR-PFIZER INC-2009153901

PATIENT
  Age: 70 Year

DRUGS (1)
  1. SUTENT [Suspect]
     Dosage: 50 UNK, UNK
     Route: 048

REACTIONS (3)
  - EYELID OEDEMA [None]
  - GENERALISED OEDEMA [None]
  - OEDEMA PERIPHERAL [None]
